FAERS Safety Report 14507497 (Version 1)
Quarter: 2018Q1

REPORT INFORMATION
  Report Type: Spontaneous
  Country: US (occurrence: US)
  Receive Date: 20180208
  Receipt Date: 20180208
  Transmission Date: 20180509
  Serious: No
  Sender: FDA-Public Use
  Company Number: US-PURDUE-USA-2017-0141605

PATIENT
  Sex: Female

DRUGS (1)
  1. BUTRANS [Suspect]
     Active Substance: BUPRENORPHINE
     Indication: BREAST CANCER METASTATIC
     Dosage: 5 MCG/HR, WEEKLY
     Route: 062
     Dates: start: 201710

REACTIONS (2)
  - Product contamination [Unknown]
  - Wrong technique in product usage process [Unknown]
